FAERS Safety Report 9449840 (Version 2)
Quarter: 2013Q3

REPORT INFORMATION
  Report Type: Spontaneous
  Country: BR (occurrence: BR)
  Receive Date: 20130809
  Receipt Date: 20130812
  Transmission Date: 20140515
  Serious: Yes (Death, Other)
  Sender: FDA-Public Use
  Company Number: PHHY2013BR085537

PATIENT
  Sex: Male
  Weight: 55 kg

DRUGS (9)
  1. EXELON PATCH [Suspect]
     Indication: MENTAL DISORDER
     Dosage: 4.6 MG, EVERY 24HOURS
     Route: 062
  2. GLIMEPIRIDE [Concomitant]
     Dosage: 1 DF, (1 TABLET) A DAY
  3. LASIX [Concomitant]
     Dosage: 1 DF, 1 TABLET A DAY
  4. RENITEC [Concomitant]
     Dosage: 1 DF, 1 TABLET A DAY
  5. SIMVASTATIN [Concomitant]
     Indication: CARDIAC DISORDER
     Dosage: 1 DF, 1 TABLET A DAY
  6. LOSARTAN [Concomitant]
     Dosage: 1 DF, 1 TABLET A DAY
  7. PRESSAT [Concomitant]
     Indication: BLOOD PRESSURE ABNORMAL
     Dosage: 1 DF, 1 TABLET A DAY
  8. SUSTRATE [Concomitant]
     Dosage: 1 DF, 1 TABLET A DAY
  9. DAFORIN [Concomitant]
     Dosage: 1 DF,1 TABLET A DAY

REACTIONS (4)
  - Infarction [Fatal]
  - Senile dementia [Unknown]
  - Decreased activity [Unknown]
  - Psychomotor hyperactivity [Unknown]
